FAERS Safety Report 25909673 (Version 1)
Quarter: 2025Q4

REPORT INFORMATION
  Report Type: Spontaneous
  Country: US (occurrence: US)
  Receive Date: 20251011
  Receipt Date: 20251011
  Transmission Date: 20260118
  Serious: Yes (Other)
  Sender: ALEXION PHARMACEUTICALS
  Company Number: US-AstraZeneca-CH-00967257A

PATIENT
  Sex: Male

DRUGS (1)
  1. IMFINZI [Suspect]
     Active Substance: DURVALUMAB
     Dosage: UNK
     Route: 065

REACTIONS (7)
  - Cough [Unknown]
  - Lung disorder [Unknown]
  - Fibrosis [Unknown]
  - Pneumonitis [Unknown]
  - Insomnia [Unknown]
  - Product dose omission issue [Unknown]
  - Inflammation [Unknown]
